FAERS Safety Report 22231412 (Version 1)
Quarter: 2023Q2

REPORT INFORMATION
  Report Type: Other
  Country: US (occurrence: None)
  Receive Date: 20230420
  Receipt Date: 20230420
  Transmission Date: 20230722
  Serious: Yes (Hospitalization)
  Sender: FDA-Public Use
  Company Number: US-ROCHE-3332139

PATIENT
  Age: 47 Year
  Sex: Male

DRUGS (1)
  1. ERIVEDGE [Suspect]
     Active Substance: VISMODEGIB
     Indication: Basal cell carcinoma
     Dosage: 1 CAPSULE BY MOUTH DAILY
     Route: 048

REACTIONS (5)
  - Road traffic accident [Unknown]
  - Memory impairment [Unknown]
  - Confusional state [Unknown]
  - Fatigue [Unknown]
  - Somnolence [Unknown]
